FAERS Safety Report 7950310-6 (Version None)
Quarter: 2011Q4

REPORT INFORMATION
  Report Type: 
  Country: None (occurrence: None)
  Receive Date: 20111130
  Receipt Date: 20111125
  Transmission Date: 20120403
  Serious: No
  Sender: FDA-Public Use
  Company Number: BR-ABBOTT-11P-020-0704831-00

PATIENT
  Sex: Male
  Weight: 63 kg

DRUGS (1)
  1. HUMIRA [Suspect]
     Indication: ANKYLOSING SPONDYLITIS
     Dosage: 40 MILLIGRAM-  1 15 DAYS
     Dates: start: 20101104

REACTIONS (2)
  - MOVEMENT DISORDER [None]
  - MUSCLE DISORDER [None]
